FAERS Safety Report 11082913 (Version 1)
Quarter: 2015Q2

REPORT INFORMATION
  Report Type: Spontaneous
  Country: US (occurrence: US)
  Receive Date: 20150501
  Receipt Date: 20150501
  Transmission Date: 20150821
  Serious: No
  Sender: FDA-Public Use
  Company Number: US-ABBVIE-15P-163-1338985-00

PATIENT
  Age: 34 Year
  Sex: Male
  Weight: 68.1 kg

DRUGS (1)
  1. ANDROGEL [Suspect]
     Active Substance: TESTOSTERONE
     Indication: BLOOD TESTOSTERONE DECREASED
     Dosage: 1 PUMP
     Route: 061
     Dates: start: 201311

REACTIONS (4)
  - Testicular disorder [Not Recovered/Not Resolved]
  - Product quality issue [Unknown]
  - Blood testosterone decreased [Not Recovered/Not Resolved]
  - Testicular pain [Unknown]

NARRATIVE: CASE EVENT DATE: 201412
